FAERS Safety Report 12704854 (Version 1)
Quarter: 2016Q3

REPORT INFORMATION
  Report Type: Spontaneous
  Country: CH (occurrence: CH)
  Receive Date: 20160831
  Receipt Date: 20160831
  Transmission Date: 20161109
  Serious: Yes (Hospitalization)
  Sender: FDA-Public Use
  Company Number: CH-MEDA-2016080104

PATIENT
  Age: 90 Year
  Sex: Female

DRUGS (8)
  1. CIPRALEX [Suspect]
     Active Substance: ESCITALOPRAM OXALATE
     Dosage: 1-0-0-0
  2. LYRICA [Suspect]
     Active Substance: PREGABALIN
     Dosage: 0-0-0-1
     Route: 048
  3. TEMESTA [Suspect]
     Active Substance: LORAZEPAM
     Dosage: 0-0-0-?
     Route: 048
  4. LYRICA [Suspect]
     Active Substance: PREGABALIN
     Dosage: 0-0-0-?
     Route: 048
  5. VITAMIN D3 STREULI [Concomitant]
     Dosage: EVERY TUESDAY
  6. ACIDUM FOLICUM STREULI [Concomitant]
     Dosage: 1-0-0-0
  7. TOREM [Suspect]
     Active Substance: TORSEMIDE
     Dosage: ?-0-0-0
  8. MADOPAR [Suspect]
     Active Substance: BENSERAZIDE HYDROCHLORIDE\LEVODOPA
     Dosage: 200/50 MG; ?-?-?-0

REACTIONS (1)
  - Fall [Unknown]

NARRATIVE: CASE EVENT DATE: 20160726
